FAERS Safety Report 9872980 (Version 2)
Quarter: 2014Q1

REPORT INFORMATION
  Report Type: Other
  Country: US (occurrence: US)
  Receive Date: 20140206
  Receipt Date: 20140206
  Transmission Date: 20141002
  Serious: No
  Sender: FDA-Public Use
  Company Number: US-ACORDA-ACO_29702_2012

PATIENT
  Age: 64 Year
  Sex: Female
  Weight: 38.95 kg

DRUGS (7)
  1. AMPYRA [Suspect]
     Indication: GAIT DISTURBANCE
     Dosage: 10 MG, Q 12 HRS
     Route: 048
     Dates: start: 20110108
  2. PROLIA [Suspect]
     Indication: OSTEOPOROSIS
     Dosage: UNK
     Dates: start: 20121218, end: 20121218
  3. CLONAZEPAM [Concomitant]
     Indication: PRODUCT USED FOR UNKNOWN INDICATION
     Dosage: 0.5 MG, UNK
     Dates: start: 2007
  4. CALCITONIN SALMON [Concomitant]
     Indication: PRODUCT USED FOR UNKNOWN INDICATION
     Dosage: 200 IU, UNK
     Dates: start: 20130611
  5. VITAMIN D3 [Concomitant]
     Indication: PRODUCT USED FOR UNKNOWN INDICATION
     Dosage: 2000 IU, UNK
     Dates: start: 200907
  6. CALCIUM WITH VITAMIN D [Concomitant]
     Indication: PRODUCT USED FOR UNKNOWN INDICATION
     Dosage: 600 UNK, UNK
     Dates: start: 200907
  7. ASPIRIN [Concomitant]
     Indication: PRODUCT USED FOR UNKNOWN INDICATION
     Dosage: 81 MG, UNK
     Dates: start: 200907

REACTIONS (5)
  - Bronchitis [Unknown]
  - Gait disturbance [Recovering/Resolving]
  - Weight decreased [Not Recovered/Not Resolved]
  - Constipation [Not Recovered/Not Resolved]
  - Balance disorder [Recovering/Resolving]
